FAERS Safety Report 6305824-1 (Version None)
Quarter: 2009Q3

REPORT INFORMATION
  Report Type: 
  Country: None (occurrence: None)
  Receive Date: 20090810
  Receipt Date: 20090112
  Transmission Date: 20100115
  Serious: Yes (Other)
  Sender: FDA-Public Use
  Company Number: US-JNJFOC-20081004464

PATIENT
  Age: 6 Year
  Sex: Male
  Weight: 23.587 kg

DRUGS (1)
  1. CHILDREN'S MOTRIN [Suspect]
     Indication: PYREXIA
     Dosage: 3 DOSE TOTAL
     Dates: start: 20080901, end: 20080901

REACTIONS (1)
  - STEVENS-JOHNSON SYNDROME [None]
